FAERS Safety Report 14571911 (Version 1)
Quarter: 2018Q1

REPORT INFORMATION
  Report Type: Spontaneous
  Country: FR (occurrence: FR)
  Receive Date: 20180226
  Receipt Date: 20180226
  Transmission Date: 20180509
  Serious: Yes (Other)
  Sender: FDA-Public Use
  Company Number: PHHY2018FR031455

PATIENT
  Age: 47 Year
  Sex: Male

DRUGS (1)
  1. VALPROATE SODIUM SANDOZ [Suspect]
     Active Substance: VALPROATE SODIUM
     Indication: EPILEPSY
     Dosage: 3 UG/LITRE, UNK
     Route: 048
     Dates: start: 201707, end: 201712

REACTIONS (2)
  - Epilepsy [Not Recovered/Not Resolved]
  - Drug ineffective [Not Recovered/Not Resolved]

NARRATIVE: CASE EVENT DATE: 201708
